FAERS Safety Report 23971227 (Version 1)
Quarter: 2024Q2

REPORT INFORMATION
  Report Type: Spontaneous
  Country: US (occurrence: US)
  Receive Date: 20240613
  Receipt Date: 20240613
  Transmission Date: 20240715
  Serious: No
  Sender: FDA-Public Use
  Company Number: US-E2BLSMVVAL-SPO/USA/24/0008362

PATIENT
  Age: 85 Year

DRUGS (2)
  1. FLUOROURACIL [Suspect]
     Active Substance: FLUOROURACIL
     Indication: Skin lesion
     Route: 065
  2. FLUOROURACIL [Suspect]
     Active Substance: FLUOROURACIL

REACTIONS (14)
  - Application site reaction [Unknown]
  - Blister [Unknown]
  - Memory impairment [Unknown]
  - Skin disorder [Unknown]
  - Pruritus [Unknown]
  - Burns second degree [Unknown]
  - Dry skin [Unknown]
  - Feeling abnormal [Unknown]
  - Rash macular [Unknown]
  - Skin exfoliation [Unknown]
  - Weight decreased [Unknown]
  - Taste disorder [Unknown]
  - Mental impairment [Unknown]
  - Suspected product quality issue [Unknown]
